FAERS Safety Report 14245846 (Version 2)
Quarter: 2017Q4

REPORT INFORMATION
  Report Type: Spontaneous
  Country: HR (occurrence: HR)
  Receive Date: 20171204
  Receipt Date: 20171213
  Transmission Date: 20180321
  Serious: Yes (Hospitalization, Other)
  Sender: FDA-Public Use
  Company Number: HR-ROCHE-2030663

PATIENT
  Age: 62 Year
  Sex: Male
  Weight: 97 kg

DRUGS (2)
  1. XELODA [Suspect]
     Active Substance: CAPECITABINE
     Indication: COLON CANCER
     Dosage: 5 TBLS IN THE MORNING AND 5 TBLS IN THE EVENING?FOR 14 DAYS
     Route: 048
     Dates: start: 20171004
  2. BETALOC ZOK [Concomitant]
     Active Substance: METOPROLOL SUCCINATE
     Route: 048

REACTIONS (11)
  - Salivary hypersecretion [Unknown]
  - Flatulence [Unknown]
  - Palmar erythema [Recovering/Resolving]
  - Diarrhoea [Recovering/Resolving]
  - Erythema [Recovering/Resolving]
  - Burn of internal organs [Unknown]
  - Wound [Unknown]
  - Haematemesis [Recovered/Resolved]
  - Palmar-plantar erythrodysaesthesia syndrome [Not Recovered/Not Resolved]
  - Stomatitis [Unknown]
  - Necrosis [Unknown]

NARRATIVE: CASE EVENT DATE: 20171114
